FAERS Safety Report 16953032 (Version 1)
Quarter: 2019Q4

REPORT INFORMATION
  Report Type: Report from Study
  Country: CA (occurrence: CA)
  Receive Date: 20191023
  Receipt Date: 20191023
  Transmission Date: 20200122
  Serious: Yes (Hospitalization)
  Sender: FDA-Public Use
  Company Number: CA-TAKEDA-2019TUS058962

PATIENT
  Age: 37 Year
  Sex: Male

DRUGS (7)
  1. CYCLOSPORINE. [Concomitant]
     Active Substance: CYCLOSPORINE
     Indication: LIVER TRANSPLANT REJECTION
     Dosage: 200 MILLIGRAM, BID
  2. TARO-WARFARIN [Concomitant]
     Active Substance: WARFARIN
     Indication: ANTICOAGULANT THERAPY
     Dosage: UNK
     Dates: start: 201511
  3. PREDNISONE. [Concomitant]
     Active Substance: PREDNISONE
     Indication: CROHN^S DISEASE
     Dosage: UNK
  4. NOVO MYCOPHENOLATE [Concomitant]
     Indication: LIVER TRANSPLANT REJECTION
     Dosage: 100 MILLIGRAM, BID
     Dates: start: 20151123
  5. VEDOLIZUMAB [Suspect]
     Active Substance: VEDOLIZUMAB
     Indication: CROHN^S DISEASE
     Dosage: 300 MILLIGRAM
     Route: 042
     Dates: start: 20160722
  6. PMS-CLONAZEPAM [Concomitant]
     Active Substance: CLONAZEPAM
     Indication: DEPRESSION POSTOPERATIVE
     Dosage: 1 MILLIGRAM, TID
  7. VITAMIN D NOS [Concomitant]
     Active Substance: VITAMIN D NOS
     Dosage: 2000 INTERNATIONAL UNIT

REACTIONS (3)
  - Pneumonia [Unknown]
  - Weight decreased [Unknown]
  - Malaise [Unknown]

NARRATIVE: CASE EVENT DATE: 2019
